FAERS Safety Report 13347191 (Version 5)
Quarter: 2017Q3

REPORT INFORMATION
  Report Type: Spontaneous
  Country: KR (occurrence: KR)
  Receive Date: 20170317
  Receipt Date: 20170823
  Transmission Date: 20171127
  Serious: Yes (Death, Other)
  Sender: FDA-Public Use
  Company Number: KR-009507513-1703KOR007070

PATIENT
  Age: 71 Year
  Sex: Female

DRUGS (32)
  1. ANYCOUGH [Concomitant]
     Active Substance: THEOBROMINE
     Indication: PROPHYLAXIS
     Dosage: 300 MG (1 CAPSULE), BID
     Route: 048
     Dates: start: 20160627
  2. MAGO [Concomitant]
     Indication: PROPHYLAXIS AGAINST GASTROINTESTINAL ULCER
     Dosage: 500 MG (1 CAPSULE), BID
     Route: 048
     Dates: start: 20160716, end: 20160716
  3. LASIX [Concomitant]
     Active Substance: FUROSEMIDE
     Dosage: 2 ML, QD
     Route: 042
     Dates: start: 20160718, end: 20160718
  4. EMEND (FOSAPREPITANT DIMEGLUMINE) [Suspect]
     Active Substance: FOSAPREPITANT DIMEGLUMINE
     Dosage: 150 MG, ONCE
     Route: 042
     Dates: start: 20160715, end: 20160715
  5. PANTOLOC [Concomitant]
     Active Substance: PANTOPRAZOLE SODIUM
     Indication: PROPHYLAXIS AGAINST GASTROINTESTINAL ULCER
     Dosage: 40 MG (1 TABLET),  QD
     Route: 048
     Dates: start: 20160621
  6. SPIRONOLACTONE. [Concomitant]
     Active Substance: SPIRONOLACTONE
     Indication: PROPHYLAXIS
     Dosage: 50 MG (2 TABLETS),  TID
     Route: 048
     Dates: start: 20160621
  7. MECKOOL [Concomitant]
     Indication: PROPHYLAXIS OF NAUSEA AND VOMITING
     Dosage: 2 ML, QD
     Route: 042
     Dates: start: 20160629, end: 20160704
  8. DEXAMETHASONE SODIUM PHOSPHATE. [Concomitant]
     Active Substance: DEXAMETHASONE SODIUM PHOSPHATE
     Indication: PROPHYLAXIS OF NAUSEA AND VOMITING
     Dosage: 12 MG, ONCE
     Route: 042
     Dates: start: 20160624, end: 20160624
  9. DEXAMETHASONE. [Concomitant]
     Active Substance: DEXAMETHASONE
     Indication: PROPHYLAXIS OF NAUSEA AND VOMITING
     Dosage: 8 MG, ONCE
     Route: 048
     Dates: start: 20160624, end: 20160624
  10. AGIO [Concomitant]
     Indication: CONSTIPATION PROPHYLAXIS
     Dosage: 1 G, QD
     Route: 048
     Dates: start: 20160701, end: 20160702
  11. METOCLOPRAMIDE. [Concomitant]
     Active Substance: METOCLOPRAMIDE
     Indication: PROPHYLAXIS AGAINST GASTROINTESTINAL ULCER
     Dosage: 3.84 MG (1 TABLET),  TID
     Route: 048
     Dates: start: 20160709, end: 20160713
  12. URSA COMPLEX [Concomitant]
     Indication: PROPHYLAXIS
     Dosage: 1 TABLET, BID
     Route: 048
     Dates: start: 20160616
  13. LASIX [Concomitant]
     Active Substance: FUROSEMIDE
     Indication: PROPHYLAXIS
     Dosage: 1 ML, ONCE
     Route: 042
     Dates: start: 20160616, end: 20160616
  14. MANNITOL. [Concomitant]
     Active Substance: MANNITOL
     Dosage: 90 ML, ONCE
     Route: 042
     Dates: start: 20160715, end: 20160715
  15. XELODA [Concomitant]
     Active Substance: CAPECITABINE
     Indication: ADENOCARCINOMA GASTRIC
     Dosage: 1950 MG, QD, CYCLE 1
     Route: 048
     Dates: start: 20160624
  16. DEXAMETHASONE. [Concomitant]
     Active Substance: DEXAMETHASONE
     Dosage: 8 MG, ONCE
     Route: 048
     Dates: start: 20160715, end: 20160715
  17. AGIO [Concomitant]
     Dosage: 1 G, ONCE
     Route: 048
     Dates: start: 20160716, end: 20160716
  18. GASBET [Concomitant]
     Indication: PROPHYLAXIS AGAINST GASTROINTESTINAL ULCER
     Dosage: 5 MG (1 TABLET), TID
     Route: 048
     Dates: start: 20160629, end: 20160708
  19. ALOXI [Concomitant]
     Active Substance: PALONOSETRON HYDROCHLORIDE
     Indication: PROPHYLAXIS OF NAUSEA AND VOMITING
     Dosage: 0.25 MG, ONCE
     Route: 042
     Dates: start: 20160624, end: 20160624
  20. ALOXI [Concomitant]
     Active Substance: PALONOSETRON HYDROCHLORIDE
     Dosage: 0.25 MG, ONCE
     Route: 042
     Dates: start: 20160715, end: 20160715
  21. FOLIC ACID. [Concomitant]
     Active Substance: FOLIC ACID
     Indication: ANAEMIA
     Dosage: 1 MG (1 TABLET), QD
     Route: 048
     Dates: start: 20160620
  22. GASBET [Concomitant]
     Dosage: 35 MG (7 TABLETS), ONCE
     Route: 048
     Dates: start: 20160709, end: 20160709
  23. DEXAMETHASONE SODIUM PHOSPHATE. [Concomitant]
     Active Substance: DEXAMETHASONE SODIUM PHOSPHATE
     Dosage: 8 MG, QD
     Route: 042
     Dates: start: 20160715, end: 20160718
  24. MECKOOL [Concomitant]
     Dosage: 2 ML, ONCE
     Route: 042
     Dates: start: 20160727, end: 20160727
  25. MECKOOL [Concomitant]
     Dosage: 2 ML, ONCE
     Route: 042
     Dates: start: 20160729, end: 20160729
  26. EMEND (FOSAPREPITANT DIMEGLUMINE) [Suspect]
     Active Substance: FOSAPREPITANT DIMEGLUMINE
     Indication: PROPHYLAXIS OF NAUSEA AND VOMITING
     Dosage: 150 MG, ONCE
     Route: 042
     Dates: start: 20160624, end: 20160624
  27. MANNITOL. [Concomitant]
     Active Substance: MANNITOL
     Indication: PROPHYLAXIS
     Dosage: 90 ML, ONCE
     Route: 042
     Dates: start: 20160624, end: 20160624
  28. MECKOOL [Concomitant]
     Dosage: 2 ML, QD
     Route: 042
     Dates: start: 20160720, end: 20160724
  29. CISPLATIN. [Concomitant]
     Active Substance: CISPLATIN
     Indication: ADENOCARCINOMA GASTRIC
     Dosage: 94 MG, ONCE, CYCLE 2
     Route: 042
     Dates: start: 20160624, end: 20160624
  30. CISPLATIN. [Concomitant]
     Active Substance: CISPLATIN
     Dosage: 94 MG, ONCE, CYCLE 2
     Route: 042
     Dates: start: 20160715, end: 20160715
  31. ELIQUIS [Concomitant]
     Active Substance: APIXABAN
     Indication: DEEP VEIN THROMBOSIS
     Dosage: 2.5 MG (1 TABLET), BID
     Route: 048
     Dates: start: 20160617
  32. LASIX [Concomitant]
     Active Substance: FUROSEMIDE
     Dosage: 2 ML, QD
     Route: 042
     Dates: start: 20160726, end: 20160726

REACTIONS (3)
  - Sepsis [Fatal]
  - Pyrexia [Recovered/Resolved]
  - Neutropenia [Not Recovered/Not Resolved]

NARRATIVE: CASE EVENT DATE: 20160723
